FAERS Safety Report 4318222-7 (Version None)
Quarter: 2004Q1

REPORT INFORMATION
  Report Type: 
  Country: None (occurrence: None)
  Receive Date: 20040315
  Receipt Date: 20040226
  Transmission Date: 20041129
  Serious: Yes (Hospitalization)
  Sender: FDA-Public Use
  Company Number: D01200301434

PATIENT
  Age: 72 Year
  Sex: Male

DRUGS (10)
  1. FONDAPARINUX -SOLUTION [Suspect]
     Indication: MYOCARDIAL INFARCTION
     Dosage: 2.5 MG QD SUBCUTANEOUS
     Route: 058
     Dates: start: 20030801, end: 20030808
  2. ASPIRIN [Concomitant]
  3. HEPARIN [Concomitant]
  4. DOBUTREX [Concomitant]
  5. ADRENALINE [Concomitant]
  6. INSULIN [Concomitant]
  7. RAMIPRIL [Concomitant]
  8. LASIX [Concomitant]
  9. ONDANSETRON HCL [Concomitant]
  10. NICARDIPINE HCL [Concomitant]

REACTIONS (3)
  - ALLERGY TEST POSITIVE [None]
  - DRUG INTERACTION [None]
  - HEPARIN-INDUCED THROMBOCYTOPENIA [None]
